FAERS Safety Report 16511756 (Version 1)
Quarter: 2019Q3

REPORT INFORMATION
  Report Type: Spontaneous
  Country: FR (occurrence: FR)
  Receive Date: 20190702
  Receipt Date: 20190702
  Transmission Date: 20191004
  Serious: Yes (Congenital Anomaly, Other)
  Sender: FDA-Public Use
  Company Number: PHHY2019FR146240

PATIENT
  Age: 1 Day

DRUGS (7)
  1. HYDROCHLOROTHIAZIDE, IRBESARTAN [Suspect]
     Active Substance: HYDROCHLOROTHIAZIDE\IRBESARTAN
     Indication: FOETAL EXPOSURE DURING PREGNANCY
     Dosage: MOTHER DOSE: UNKNOWN
     Route: 064
  2. LYRICA [Suspect]
     Active Substance: PREGABALIN
     Indication: FOETAL EXPOSURE DURING PREGNANCY
     Dosage: MOTHER DOSE: 150 MG,BID
     Route: 064
  3. AOTAL [Suspect]
     Active Substance: ACAMPROSATE CALCIUM
     Indication: FOETAL EXPOSURE DURING PREGNANCY
     Dosage: MOTHER DOSE: 333 MG, Q6H
     Route: 064
  4. LOXEN (NICARDIPINE HYDROCHLORIDE) [Suspect]
     Active Substance: NICARDIPINE HYDROCHLORIDE
     Indication: FOETAL EXPOSURE DURING PREGNANCY
     Dosage: MOTHER DOSE: UNKNOWN
     Route: 064
  5. ALCOHOL. [Suspect]
     Active Substance: ALCOHOL
     Indication: FOETAL EXPOSURE DURING PREGNANCY
     Dosage: MOTHER DOSE: UNKNOWN
     Route: 064
  6. REVIA [Suspect]
     Active Substance: NALTREXONE HYDROCHLORIDE
     Indication: FOETAL EXPOSURE DURING PREGNANCY
     Dosage: MOTHER DOSE: 50 MG,QD
     Route: 064
  7. TAHOR [Suspect]
     Active Substance: ATORVASTATIN CALCIUM
     Indication: FOETAL EXPOSURE DURING PREGNANCY
     Dosage: MOTHER DOSE: 20 MG,QD
     Route: 064

REACTIONS (2)
  - Foetal exposure during pregnancy [Unknown]
  - Foetal alcohol syndrome [Unknown]
